FAERS Safety Report 7180142-0 (Version None)
Quarter: 2010Q4

REPORT INFORMATION
  Report Type: 
  Country: None (occurrence: None)
  Receive Date: 20101209
  Receipt Date: 20101123
  Transmission Date: 20110411
  Serious: Yes (Other)
  Sender: FDA-Public Use
  Company Number: FKO201000521

PATIENT
  Age: 50 Year
  Sex: Male

DRUGS (3)
  1. FLUOROURACIL (MANUFACTURER UNKNOWN) [Suspect]
     Indication: COLON CANCER
     Dosage: (400 MG/M2) (2400 MG/M2)
  2. OXALIPLATIN [Concomitant]
  3. FOLINIC ACID [Concomitant]

REACTIONS (1)
  - HYPERAMMONAEMIC ENCEPHALOPATHY [None]
